FAERS Safety Report 24839484 (Version 1)
Quarter: 2025Q1

REPORT INFORMATION
  Report Type: Report from Study
  Country: CA (occurrence: CA)
  Receive Date: 20250114
  Receipt Date: 20250114
  Transmission Date: 20250408
  Serious: Yes (Other)
  Sender: BIOGEN
  Company Number: CA-BIOGEN-2025BI01296491

PATIENT
  Age: 38 Year
  Sex: Female

DRUGS (1)
  1. TYSABRI [Suspect]
     Active Substance: NATALIZUMAB
     Indication: Multiple sclerosis
     Route: 050
     Dates: start: 20231229

REACTIONS (4)
  - Seizure [Recovered/Resolved]
  - Anxiety [Unknown]
  - Multiple sclerosis [Unknown]
  - Depression [Unknown]

NARRATIVE: CASE EVENT DATE: 20240801
